FAERS Safety Report 11794715 (Version 2)
Quarter: 2016Q1

REPORT INFORMATION
  Report Type: Spontaneous
  Country: JP (occurrence: JP)
  Receive Date: 20151202
  Receipt Date: 20160106
  Transmission Date: 20160525
  Serious: No
  Sender: FDA-Public Use
  Company Number: JP-EMD SERONO-8056249

PATIENT
  Age: 44 Year
  Sex: Male

DRUGS (1)
  1. GONAL-F [Suspect]
     Active Substance: FOLLITROPIN
     Indication: INFERTILITY MALE
     Route: 058

REACTIONS (1)
  - No adverse event [Unknown]
